FAERS Safety Report 20218243 (Version 1)
Quarter: 2021Q4

REPORT INFORMATION
  Report Type: Spontaneous
  Country: DE (occurrence: None)
  Receive Date: 20211222
  Receipt Date: 20211222
  Transmission Date: 20220303
  Serious: Yes (Hospitalization)
  Sender: FDA-Public Use
  Company Number: DE-ADRED-07608-01

PATIENT
  Age: 59 Year
  Sex: Male
  Weight: 54.1 kg

DRUGS (9)
  1. OXALIPLATIN [Suspect]
     Active Substance: OXALIPLATIN
     Indication: Product used for unknown indication
     Dosage: SCHEDULED
     Route: 042
  2. FLUOROURACIL [Suspect]
     Active Substance: FLUOROURACIL
     Indication: Product used for unknown indication
     Dosage: SCHEDULED
     Route: 042
  3. VILANTEROL/UMECLIDINIUM BROMIDE [Concomitant]
     Indication: Product used for unknown indication
     Dosage: 62.5/25 UG, 1-0-0-0, POWDER FOR INHALATION
     Route: 055
  4. ETORICOXIB [Concomitant]
     Active Substance: ETORICOXIB
     Indication: Product used for unknown indication
     Dosage: 1-0-0-0
     Route: 048
  5. OXYCODONE HYDROCHLORIDE/NALOXONE HYDROCHLORIDE [Concomitant]
     Active Substance: NALOXONE HYDROCHLORIDE\OXYCODONE HYDROCHLORIDE
     Indication: Product used for unknown indication
     Dosage: 20/40 MG, 1-0-1-0?NALOXONE W/OXYCODONE
     Route: 048
  6. LEUCOVORIN CALCIUM [Concomitant]
     Active Substance: LEUCOVORIN CALCIUM
     Indication: Product used for unknown indication
     Dosage: ACCORDING TO PLAN
     Route: 042
  7. ALLOPURINOL [Concomitant]
     Active Substance: ALLOPURINOL
     Indication: Product used for unknown indication
     Dosage: 1-0-0-0
     Route: 048
  8. ZOPICLONE [Concomitant]
     Active Substance: ZOPICLONE
     Indication: Product used for unknown indication
     Dosage: AS REQUIRED
     Route: 048
  9. OXYCODONE HYDROCHLORIDE [Concomitant]
     Active Substance: OXYCODONE HYDROCHLORIDE
     Indication: Product used for unknown indication
     Dosage: NEEDED
     Route: 048

REACTIONS (1)
  - Urinary tract infection [Recovering/Resolving]
